FAERS Safety Report 22647679 (Version 1)
Quarter: 2023Q2

REPORT INFORMATION
  Report Type: Spontaneous
  Country: US (occurrence: US)
  Receive Date: 20230628
  Receipt Date: 20230628
  Transmission Date: 20230721
  Serious: No
  Sender: FDA-Public Use
  Company Number: US-SANOFI-01665386

PATIENT
  Age: 69 Year
  Sex: Male

DRUGS (2)
  1. SOLIQUA 100/33 [Suspect]
     Active Substance: INSULIN GLARGINE\LIXISENATIDE
     Indication: Type 2 diabetes mellitus
     Dosage: 36 IU, QD
     Dates: start: 202212
  2. SOLIQUA 100/33 [Suspect]
     Active Substance: INSULIN GLARGINE\LIXISENATIDE
     Dosage: 38 IU, QD

REACTIONS (5)
  - Injection site haemorrhage [Unknown]
  - Device issue [Unknown]
  - Blood glucose abnormal [Unknown]
  - Cognitive disorder [Unknown]
  - Visual impairment [Unknown]
